FAERS Safety Report 4280617-8 (Version None)
Quarter: 2004Q1

REPORT INFORMATION
  Report Type: 
  Country: None (occurrence: None)
  Receive Date: 20040127
  Receipt Date: 20040114
  Transmission Date: 20041129
  Serious: Yes (Hospitalization)
  Sender: FDA-Public Use
  Company Number: 2004002995

PATIENT
  Age: 82 Year
  Sex: Male

DRUGS (2)
  1. GLUCOTROL [Suspect]
     Indication: ILL-DEFINED DISORDER
     Dosage: 5 MG (DAILY), ORAL
     Route: 048
  2. GATIFLOXACIN (GATIFLOXACIN) [Suspect]
     Indication: PYREXIA
     Dosage: 400 MG (DAILY), ORAL
     Route: 048

REACTIONS (6)
  - BLOOD GLUCOSE INCREASED [None]
  - CONFUSIONAL STATE [None]
  - DRUG INTERACTION [None]
  - DRUG TOXICITY [None]
  - HYPOGLYCAEMIA [None]
  - PYREXIA [None]
